FAERS Safety Report 23107150 (Version 1)
Quarter: 2023Q4

REPORT INFORMATION
  Report Type: Spontaneous
  Country: CO (occurrence: CO)
  Receive Date: 20231026
  Receipt Date: 20231026
  Transmission Date: 20240110
  Serious: Yes (Hospitalization, Other)
  Sender: FDA-Public Use
  Company Number: CO-PFIZER INC-PV202300173366

PATIENT
  Sex: Female

DRUGS (1)
  1. ENBREL [Suspect]
     Active Substance: ETANERCEPT
     Indication: Product used for unknown indication
     Dosage: 50 MG
     Route: 058

REACTIONS (6)
  - Renal injury [Unknown]
  - Systemic lupus erythematosus [Unknown]
  - Feeling abnormal [Unknown]
  - Chest pain [Unknown]
  - Pain in extremity [Unknown]
  - Fatigue [Unknown]
